FAERS Safety Report 8514814-X (Version None)
Quarter: 2012Q3

REPORT INFORMATION
  Report Type: 
  Country: None (occurrence: None)
  Receive Date: 20120711
  Receipt Date: 20120711
  Transmission Date: 20120928
  Serious: Yes (Other)
  Sender: FDA-Public Use
  Company Number: None

PATIENT
  Age: 61 Year
  Sex: Female
  Weight: 70 kg

DRUGS (8)
  1. CEFEPIME [Suspect]
     Indication: URINARY TRACT INFECTION
     Dosage: 1 GRAM Q12HR IV DRIP
     Route: 041
     Dates: start: 20120627, end: 20120629
  2. SENNA-MINT WAF [Concomitant]
  3. OXYCODONE HCL AND ACETAMINOPHEN [Concomitant]
  4. POTASSIUM CHLORIDE [Concomitant]
  5. OXYBUTYNIN [Concomitant]
  6. PRAASTATIN [Concomitant]
  7. PROCHLORPERAZINE [Concomitant]
  8. ALLERGY RELIEF CAPSULE [Concomitant]

REACTIONS (3)
  - DYSPHEMIA [None]
  - DYSARTHRIA [None]
  - TREMOR [None]
